FAERS Safety Report 20832716 (Version 1)
Quarter: 2022Q2

REPORT INFORMATION
  Report Type: Spontaneous
  Country: US (occurrence: None)
  Receive Date: 20220515
  Receipt Date: 20220515
  Transmission Date: 20220721
  Serious: Yes (Hospitalization)
  Sender: FDA-Public Use
  Company Number: None

PATIENT
  Age: 71 Year
  Sex: Female
  Weight: 74.25 kg

DRUGS (8)
  1. PAXLOVID [Suspect]
     Active Substance: NIRMATRELVIR\RITONAVIR
     Indication: COVID-19
     Dosage: OTHER QUANTITY : 3 TABLET(S);?FREQUENCY : TWICE A DAY;?
     Route: 048
     Dates: start: 20220513, end: 20220514
  2. Valacyclovir [Concomitant]
  3. VITAMINS [Concomitant]
     Active Substance: VITAMINS
  4. VITAMIN C [Concomitant]
     Active Substance: ASCORBIC ACID
  5. CALCIUM [Concomitant]
     Active Substance: CALCIUM
  6. WALGREENS MUCUS RELIEF DM [Concomitant]
  7. WAL-FINATE [Concomitant]
     Active Substance: CHLORPHENIRAMINE MALEATE
  8. CHLORPHENIRAMINE [Concomitant]
     Active Substance: CHLORPHENIRAMINE

REACTIONS (5)
  - Dizziness [None]
  - Feeling abnormal [None]
  - Loss of consciousness [None]
  - Skin abrasion [None]
  - Discomfort [None]

NARRATIVE: CASE EVENT DATE: 20220514
